FAERS Safety Report 4791674-4 (Version None)
Quarter: 2005Q4

REPORT INFORMATION
  Report Type: 
  Country: None (occurrence: None)
  Receive Date: 20051005
  Receipt Date: 20050916
  Transmission Date: 20060501
  Serious: Yes (Death, Hospitalization)
  Sender: FDA-Public Use
  Company Number: AU_050908969

PATIENT
  Age: 58 Year
  Sex: Female

DRUGS (1)
  1. XIGRIS [Suspect]
     Indication: SEPSIS
     Dates: start: 20050830, end: 20050831

REACTIONS (2)
  - SEPTIC SHOCK [None]
  - THERAPY NON-RESPONDER [None]
